FAERS Safety Report 15289510 (Version 5)
Quarter: 2019Q4

REPORT INFORMATION
  Report Type: Report from Study
  Country: US (occurrence: US)
  Receive Date: 20180817
  Receipt Date: 20191220
  Transmission Date: 20200122
  Serious: Yes (Other)
  Sender: FDA-Public Use
  Company Number: US-ALLERGAN-1840098US

PATIENT
  Sex: Female
  Weight: 81.63 kg

DRUGS (1)
  1. BIMATOPROST. [Suspect]
     Active Substance: BIMATOPROST
     Indication: OPEN ANGLE GLAUCOMA
     Dosage: 10 ?G, SINGLE
     Route: 031
     Dates: start: 20170720, end: 20180828

REACTIONS (1)
  - Corneal endothelial cell loss [Recovering/Resolving]

NARRATIVE: CASE EVENT DATE: 20180813
